FAERS Safety Report 7384736-9 (Version None)
Quarter: 2011Q1

REPORT INFORMATION
  Report Type: 
  Country: None (occurrence: None)
  Receive Date: 20110330
  Receipt Date: 20110316
  Transmission Date: 20110831
  Serious: Yes (Other)
  Sender: FDA-Public Use
  Company Number: PHHY2011KR22659

PATIENT
  Age: 74 Year
  Sex: Male

DRUGS (1)
  1. PAMIDRONATE DISODIUM [Suspect]
     Indication: BONE LESION
     Dosage: 15 MG/MONTH
     Route: 042

REACTIONS (1)
  - OSTEONECROSIS OF JAW [None]
